FAERS Safety Report 9121194 (Version 2)
Quarter: 2013Q2

REPORT INFORMATION
  Report Type: Spontaneous
  Country: US (occurrence: US)
  Receive Date: 20130225
  Receipt Date: 20130404
  Transmission Date: 20140414
  Serious: Yes (Death, Hospitalization, Congenital Anomaly, Other)
  Sender: FDA-Public Use
  Company Number: US-PFIZER INC-2013065329

PATIENT
  Sex: Female

DRUGS (2)
  1. ZOLOFT [Suspect]
     Indication: DEPRESSION
     Dosage: UNK
     Route: 064
     Dates: start: 20090513
  2. SERTRALINE HCL [Suspect]
     Indication: DEPRESSION
     Dosage: UNK
     Route: 064
     Dates: start: 20090513

REACTIONS (12)
  - Foetal exposure during pregnancy [Fatal]
  - Ductus arteriosus premature closure [Fatal]
  - Persistent foetal circulation [Fatal]
  - Tricuspid valve incompetence [Unknown]
  - Heart disease congenital [Unknown]
  - Ventricular septal defect [Unknown]
  - Hypoxia [Unknown]
  - Bradycardia neonatal [Unknown]
  - Atrial septal defect [Unknown]
  - Right ventricular hypertrophy [Unknown]
  - Right ventricular dysfunction [Unknown]
  - Premature baby [Unknown]
